FAERS Safety Report 22079714 (Version 3)
Quarter: 2023Q1

REPORT INFORMATION
  Report Type: Spontaneous
  Country: DE (occurrence: None)
  Receive Date: 20230309
  Receipt Date: 20230324
  Transmission Date: 20230417
  Serious: Yes (Other)
  Sender: FDA-Public Use
  Company Number: 2023A053377

PATIENT
  Age: 698 Month
  Sex: Male
  Weight: 90 kg

DRUGS (12)
  1. FASENRA [Suspect]
     Active Substance: BENRALIZUMAB
     Route: 058
     Dates: start: 201901
  2. BYETTA [Suspect]
     Active Substance: EXENATIDE
  3. BECLOMETHASONE DIPROPIONATE\FORMOTEROL FUMARATE\GLYCOPYRROLATE [Concomitant]
     Active Substance: BECLOMETHASONE DIPROPIONATE\FORMOTEROL FUMARATE\GLYCOPYRROLATE
     Dosage: 87/8/9 MG
  4. BECLOMETHASONE DIPROPIONATE\FORMOTEROL FUMARATE\GLYCOPYRROLATE [Concomitant]
     Active Substance: BECLOMETHASONE DIPROPIONATE\FORMOTEROL FUMARATE\GLYCOPYRROLATE
     Dosage: 174/8/9 MG
  5. PREDNISONE [Concomitant]
     Active Substance: PREDNISONE
     Indication: Adrenal insufficiency
  6. ACETYLCYSTEINE [Concomitant]
     Active Substance: ACETYLCYSTEINE
  7. PANTOPRAZOLE SODIUM [Concomitant]
     Active Substance: PANTOPRAZOLE SODIUM
  8. EXFORGE [Concomitant]
     Active Substance: AMLODIPINE BESYLATE\VALSARTAN
     Dosage: 5/160 MG
  9. URAPIDIL [Concomitant]
     Active Substance: URAPIDIL
  10. CHOLECALCIFEROL [Concomitant]
     Active Substance: CHOLECALCIFEROL
     Dosage: 20000 IE ONCE A WEEK
  11. ETORICOXIB [Concomitant]
     Active Substance: ETORICOXIB
  12. NYSTADERM [Concomitant]

REACTIONS (9)
  - Basal cell carcinoma [Unknown]
  - Seizure [Unknown]
  - Gastrointestinal haemorrhage [Unknown]
  - Diabetic neuropathy [Unknown]
  - Eosinophilic granulomatosis with polyangiitis [Unknown]
  - Melanocytic naevus [Unknown]
  - Cataract [Unknown]
  - Osteoporosis [Unknown]
  - Nodal osteoarthritis [Unknown]

NARRATIVE: CASE EVENT DATE: 20100301
